FAERS Safety Report 6377754-0 (Version None)
Quarter: 2009Q3

REPORT INFORMATION
  Report Type: 
  Country: None (occurrence: None)
  Receive Date: 20090925
  Receipt Date: 20090917
  Transmission Date: 20100115
  Serious: Yes (Hospitalization, Other)
  Sender: FDA-Public Use
  Company Number: US-B.I. PHARMACEUTICALS,INC./RIDGEFIELD-2009-DE-06046GD

PATIENT
  Age: 11 Year
  Sex: Female
  Weight: 68 kg

DRUGS (22)
  1. ACTIVASE [Suspect]
     Indication: DEEP VEIN THROMBOSIS
     Dosage: 1 MG/HOUR (0.015 MG/KG/HR)
     Route: 042
  2. ACTIVASE [Suspect]
     Indication: PULMONARY EMBOLISM
     Dosage: 1 MG/HOUR (0.015 MG/KG/HR)
     Route: 042
  3. ACTIVASE [Suspect]
     Indication: RENAL VEIN THROMBOSIS
     Dosage: 1 MG/HOUR (0.015 MG/KG/HR)
     Route: 042
  4. ACTIVASE [Suspect]
     Indication: VENA CAVA THROMBOSIS
     Dosage: 1 MG/HOUR (0.015 MG/KG/HR)
     Route: 042
  5. RANITIDINE [Suspect]
  6. CEFAZOLIN [Suspect]
  7. CHLORAL HYDRATE [Suspect]
  8. HEPARIN [Suspect]
     Indication: DEEP VEIN THROMBOSIS
     Dosage: 70 UNIT/KG INTRAVENOUS BOLUS, 18 UNITS/KG/HR CONTINUOUS INFUSION, GOAL ACTIVATED PARTIAL THROMBOPLAS
     Route: 042
  9. HEPARIN [Suspect]
     Indication: PULMONARY EMBOLISM
     Dosage: 10 UNITS/KG/HR; LATER TITRATED TO KEEP THE PTT AT 1.5-2X NORMAL
     Route: 042
  10. HEPARIN [Suspect]
     Indication: THROMBOSIS PROPHYLAXIS
  11. ENOXAPARIN [Suspect]
     Indication: THROMBOSIS PROPHYLAXIS
     Dosage: ADJUSTED TO TARGET ANTI-XA OF 0.5-1.0 U/ML
  12. BIVALIRUDIN [Suspect]
     Indication: DEEP VEIN THROMBOSIS
     Dosage: 125 MCG/KG IV BOLUS FOLLOWED BY 125 MCG/KG/HR INFUSION MONITORED BY PTT (GOAL 1.5-2X NORMAL)
     Route: 042
  13. BIVALIRUDIN [Suspect]
     Indication: PULMONARY EMBOLISM
  14. BIVALIRUDIN [Suspect]
     Indication: THROMBOSIS PROPHYLAXIS
  15. BIVALIRUDIN [Suspect]
     Indication: VENA CAVA THROMBOSIS
  16. WARFARIN [Suspect]
     Indication: THROMBOSIS PROPHYLAXIS
     Dosage: 5 MG EVERY OTHER DAY
     Route: 048
  17. ARGATROBAN [Suspect]
     Indication: DEEP VEIN THROMBOSIS
     Dosage: 2 MCG/KG/MIN (ADJUSTED TO 0.32-0.4 MCG/KG/MIN TO MAINTAIN PTT 1.5-2X NORMAL)
  18. ARGATROBAN [Suspect]
     Indication: PULMONARY EMBOLISM
     Dosage: 0.4-7.9 MCG/KG/MIN
  19. ARGATROBAN [Suspect]
     Indication: THROMBOSIS PROPHYLAXIS
     Dosage: GOAL PTT 1.5-2X NORMAL, REQUIRING INCREASING DOSES FROM 2 UP TO 17.5 MCG/KG/MIN
  20. ARGATROBAN [Suspect]
     Indication: RENAL VEIN THROMBOSIS
  21. ARGATROBAN [Suspect]
     Indication: VENA CAVA THROMBOSIS
  22. FONDAPARINUX [Suspect]
     Indication: THROMBOSIS PROPHYLAXIS
     Dosage: 7.5 MG
     Route: 058

REACTIONS (13)
  - ABDOMINAL PAIN [None]
  - ANXIETY [None]
  - DEEP VEIN THROMBOSIS [None]
  - DRUG INTERACTION [None]
  - HYPERTENSION [None]
  - KLEBSIELLA SEPSIS [None]
  - PNEUMOTHORAX [None]
  - PULMONARY EMBOLISM [None]
  - PULMONARY HAEMORRHAGE [None]
  - PULMONARY HYPERTENSION [None]
  - RENAL VEIN THROMBOSIS [None]
  - RESPIRATORY FAILURE [None]
  - VENA CAVA THROMBOSIS [None]
